FAERS Safety Report 8602220-9 (Version None)
Quarter: 2012Q3

REPORT INFORMATION
  Report Type: 
  Country: None (occurrence: None)
  Receive Date: 20120817
  Receipt Date: 20120810
  Transmission Date: 20120928
  Serious: Yes (Hospitalization, Other)
  Sender: FDA-Public Use
  Company Number: AU-PFIZER INC-2012155790

PATIENT
  Age: 81 Year
  Sex: Male

DRUGS (6)
  1. CORDARONE [Suspect]
     Dosage: 100 MG, 2X/DAY
     Route: 048
     Dates: start: 20111101, end: 20120101
  2. CORDARONE [Suspect]
     Indication: ATRIAL FIBRILLATION
     Dosage: 200 MG, 2X/DAY
     Route: 048
     Dates: start: 20111103
  3. WARFARIN [Concomitant]
     Dosage: UNK
  4. CORDARONE [Suspect]
     Dosage: 100 MG, DAILY
     Route: 048
     Dates: start: 20120101, end: 20120620
  5. LIPITOR [Concomitant]
     Dosage: 40 MG, DAILY
  6. RAMIPRIL [Concomitant]
     Dosage: 5 MG, DAILY

REACTIONS (2)
  - ABSCESS LIMB [None]
  - NEUROPATHY PERIPHERAL [None]
